FAERS Safety Report 5938611-4 (Version None)
Quarter: 2008Q4

REPORT INFORMATION
  Report Type: 
  Country: None (occurrence: None)
  Receive Date: 20081103
  Receipt Date: 20081024
  Transmission Date: 20090506
  Serious: Yes (Life-Threatening, Other)
  Sender: FDA-Public Use
  Company Number: JP-ABBOTT-08P-087-0453363-00

PATIENT
  Age: 7 Decade
  Sex: Male

DRUGS (13)
  1. LEUPLIN FOR INJECTION KIT 3.75 MG [Suspect]
     Indication: PROSTATE CANCER
     Route: 058
     Dates: start: 20080430, end: 20080430
  2. BICALUTAMIDE [Concomitant]
     Indication: PROSTATE CANCER
     Route: 048
     Dates: start: 20080422, end: 20080508
  3. LIDOCAINE HYDROCHLORIDE [Concomitant]
     Indication: ANAESTHESIA
     Dosage: 1%, 30 ML
     Dates: start: 20080423
  4. ENDOCRINE THERAPY [Concomitant]
     Indication: DRUG USE FOR UNKNOWN INDICATION
  5. METHYLPREDNISOLONE SODIUM SUCCINATE [Concomitant]
     Indication: DRUG USE FOR UNKNOWN INDICATION
     Dosage: 1000 MG, DAILY
     Dates: start: 20080508
  6. MEROPENEM TRIHYDRATE [Concomitant]
     Indication: DRUG USE FOR UNKNOWN INDICATION
     Dosage: 0.5 G, DAILY
     Route: 042
     Dates: start: 20080508
  7. PREDNISOLONE SODIUM PHOSPHATE [Concomitant]
     Indication: DRUG USE FOR UNKNOWN INDICATION
     Dates: start: 20080511
  8. PREDNISOLONE SODIUM PHOSPHATE [Concomitant]
     Dates: start: 20080530
  9. PREDNISOLONE SODIUM PHOSPHATE [Concomitant]
     Dosage: 30 MG, DAILY
     Dates: start: 20080602
  10. PREDNISOLONE SODIUM PHOSPHATE [Concomitant]
     Dosage: 20 MG, DAILY
     Dates: start: 20080609
  11. PREDNISOLONE SODIUM PHOSPHATE [Concomitant]
     Dosage: 17.5 MG, DAILY
     Dates: start: 20080623
  12. PREDNISOLONE SODIUM PHOSPHATE [Concomitant]
     Dosage: 15 MG, DAILY
     Dates: start: 20080707
  13. PREDNISOLONE SODIUM PHOSPHATE [Concomitant]
     Dates: start: 20080805

REACTIONS (16)
  - BLADDER DISORDER [None]
  - BONE DISORDER [None]
  - CARDIOMEGALY [None]
  - CHEST X-RAY ABNORMAL [None]
  - DYSPNOEA EXERTIONAL [None]
  - HYPOXIA [None]
  - INTERSTITIAL LUNG DISEASE [None]
  - LUNG DISORDER [None]
  - LYMPHADENOPATHY [None]
  - METASTASES TO BONE [None]
  - PLEURAL EFFUSION [None]
  - PNEUMONIA [None]
  - PROSTATOMEGALY [None]
  - PULMONARY FIBROSIS [None]
  - RENAL DISORDER [None]
  - RENAL SCAN ABNORMAL [None]
